FAERS Safety Report 6244427-4 (Version None)
Quarter: 2009Q2

REPORT INFORMATION
  Report Type: 
  Country: None (occurrence: None)
  Receive Date: 20090625
  Receipt Date: 20090619
  Transmission Date: 20091009
  Serious: Yes (Other)
  Sender: FDA-Public Use
  Company Number: JP-JNJFOC-20090607376

PATIENT
  Age: 92 Year
  Sex: Female

DRUGS (2)
  1. ITRIZOLE [Suspect]
     Route: 041
  2. ITRIZOLE [Suspect]
     Indication: FUNGAL INFECTION
     Route: 041

REACTIONS (1)
  - RENAL IMPAIRMENT [None]
